FAERS Safety Report 6303003-5 (Version None)
Quarter: 2009Q3

REPORT INFORMATION
  Report Type: 
  Country: None (occurrence: None)
  Receive Date: 20090810
  Receipt Date: 20090805
  Transmission Date: 20100115
  Serious: Yes (Death)
  Sender: FDA-Public Use
  Company Number: GB-JNJFOC-20090802498

PATIENT

DRUGS (3)
  1. CAELYX [Suspect]
     Indication: NEPHROBLASTOMA
     Route: 065
  2. DACTINOMYCIN [Suspect]
     Indication: NEPHROBLASTOMA
     Route: 065
  3. VINCRISTINE [Suspect]
     Indication: NEPHROBLASTOMA
     Route: 065

REACTIONS (3)
  - DISEASE RECURRENCE [None]
  - NEPHROBLASTOMA [None]
  - OFF LABEL USE [None]
